FAERS Safety Report 5272588-2 (Version None)
Quarter: 2007Q1

REPORT INFORMATION
  Report Type: 
  Country: None (occurrence: None)
  Receive Date: 20070322
  Receipt Date: 20070309
  Transmission Date: 20070707
  Serious: Yes (Hospitalization)
  Sender: FDA-Public Use
  Company Number: PHEH2007US00822

PATIENT
  Age: 31 Year
  Sex: Female

DRUGS (2)
  1. GLEEVEC [Suspect]
     Indication: CHRONIC MYELOID LEUKAEMIA
     Dosage: UNK, QD
     Route: 048
     Dates: end: 20060101
  2. GLEEVEC [Suspect]
     Dosage: UNK, QOD
     Route: 048

REACTIONS (4)
  - CHROMOSOME ANALYSIS ABNORMAL [None]
  - DRUG EXPOSURE DURING PREGNANCY [None]
  - GENERAL PHYSICAL CONDITION ABNORMAL [None]
  - MULTIPLE PREGNANCY [None]
